FAERS Safety Report 5300368-8 (Version None)
Quarter: 2007Q2

REPORT INFORMATION
  Report Type: 
  Country: None (occurrence: None)
  Receive Date: 20070413
  Receipt Date: 20070413
  Transmission Date: 20071010
  Serious: Yes (Life-Threatening, Hospitalization)
  Sender: FDA-Public Use
  Company Number: None

PATIENT
  Age: 35 Year
  Sex: Female
  Weight: 95.2554 kg

DRUGS (1)
  1. NUVARING [Suspect]
     Indication: POLYCYSTIC OVARIES
     Dosage: 9-10 MONTHS

REACTIONS (4)
  - BLOOD FIBRINOGEN DECREASED [None]
  - CONTUSION [None]
  - DEEP VEIN THROMBOSIS [None]
  - WEIGHT INCREASED [None]
